FAERS Safety Report 6254709-8 (Version None)
Quarter: 2009Q3

REPORT INFORMATION
  Report Type: 
  Country: None (occurrence: None)
  Receive Date: 20090702
  Receipt Date: 20090622
  Transmission Date: 20100115
  Serious: Yes (Hospitalization)
  Sender: FDA-Public Use
  Company Number: JP-PFIZER INC-2009231901

PATIENT
  Age: 33 Year

DRUGS (2)
  1. SUNITINIB MALATE [Suspect]
     Indication: BREAST CANCER RECURRENT
     Dosage: 37.5 MG, 1X/DAY
     Route: 048
     Dates: start: 20090527
  2. *CAPECITABINE [Suspect]
     Indication: BREAST CANCER RECURRENT
     Dosage: 1450 MG, 2X/DAY, 2WEEKS ON 1 WEEK OFF
     Route: 048
     Dates: start: 20090527

REACTIONS (1)
  - ASCITES [None]
